FAERS Safety Report 9711412 (Version 1)
Quarter: 2013Q4

REPORT INFORMATION
  Report Type: Spontaneous
  Country: US (occurrence: None)
  Receive Date: 20131125
  Receipt Date: 20131125
  Transmission Date: 20140711
  Serious: Yes (Other)
  Sender: FDA-Public Use
  Company Number: None

PATIENT
  Age: 41 Year
  Sex: Female
  Weight: 38.56 kg

DRUGS (1)
  1. OCTREOTIDE ACETATE [Suspect]
     Indication: CARCINOID SYNDROME
     Dosage: 0.1ML  THREE TIMES DAILY GIVEN INTO/UNDER THE SKIN
     Route: 058
     Dates: start: 20131111, end: 20131123

REACTIONS (10)
  - Blood glucose decreased [None]
  - Tremor [None]
  - Asthenia [None]
  - Hyperhidrosis [None]
  - Dizziness [None]
  - Hypoaesthesia [None]
  - Paraesthesia [None]
  - Palpitations [None]
  - Feeling abnormal [None]
  - Presyncope [None]
